FAERS Safety Report 5055772-2 (Version None)
Quarter: 2006Q3

REPORT INFORMATION
  Report Type: 
  Country: None (occurrence: None)
  Receive Date: 20060714
  Receipt Date: 20060629
  Transmission Date: 20061208
  Serious: Yes (Other)
  Sender: FDA-Public Use
  Company Number: 2006SP002602

PATIENT
  Sex: Male

DRUGS (3)
  1. LUNESTA [Suspect]
     Dosage: 3 MG; ORAL
     Route: 048
  2. MUSCLE RELAXANTS [Concomitant]
  3. ALLERGY MEDICATION [Concomitant]

REACTIONS (2)
  - ANAPHYLACTIC SHOCK [None]
  - SWELLING FACE [None]
